FAERS Safety Report 26024555 (Version 4)
Quarter: 2025Q4

REPORT INFORMATION
  Report Type: Spontaneous
  Country: EU (occurrence: EU)
  Receive Date: 20251111
  Receipt Date: 20251217
  Transmission Date: 20260117
  Serious: Yes (Life-Threatening, Hospitalization, Other)
  Sender: BRISTOL-MYERS SQUIBB COMPANY
  Company Number: EU-BRISTOL-MYERS SQUIBB COMPANY-2025-151112

PATIENT
  Age: 59 Year
  Sex: Male

DRUGS (4)
  1. CAMZYOS [Suspect]
     Active Substance: MAVACAMTEN
     Indication: Hypertrophic cardiomyopathy
     Dosage: INCREASED TO 15MG FOR 2 MONTHS
  2. CAMZYOS [Suspect]
     Active Substance: MAVACAMTEN
  3. CORDARONE [Suspect]
     Active Substance: AMIODARONE HYDROCHLORIDE
     Indication: Atrial fibrillation
     Dosage: LOADING DOSE MORNING
     Route: 048
  4. CORDARONE [Suspect]
     Active Substance: AMIODARONE HYDROCHLORIDE
     Dosage: LOADING DOSE EVENING 5 TABS (200MG)
     Route: 048

REACTIONS (5)
  - Cardiogenic shock [Recovered/Resolved]
  - Left ventricular dysfunction [Recovered/Resolved]
  - Atrial fibrillation [Recovering/Resolving]
  - Ejection fraction decreased [Recovering/Resolving]
  - Cardiac failure [Unknown]

NARRATIVE: CASE EVENT DATE: 20251029
